FAERS Safety Report 15659616 (Version 1)
Quarter: 2018Q4

REPORT INFORMATION
  Report Type: Spontaneous
  Country: TH (occurrence: TH)
  Receive Date: 20181127
  Receipt Date: 20181127
  Transmission Date: 20190205
  Serious: Yes (Death)
  Sender: FDA-Public Use
  Company Number: TH-ACTELION-A-CH2018-182418

PATIENT
  Sex: Female

DRUGS (1)
  1. TRACLEER [Suspect]
     Active Substance: BOSENTAN
     Indication: PULMONARY ARTERIAL HYPERTENSION
     Dosage: 0.5 DF, BID
     Route: 048

REACTIONS (2)
  - Infection [Fatal]
  - Product use issue [Unknown]

NARRATIVE: CASE EVENT DATE: 201811
